FAERS Safety Report 25520930 (Version 1)
Quarter: 2025Q3

REPORT INFORMATION
  Report Type: Spontaneous
  Country: US (occurrence: US)
  Receive Date: 20250705
  Receipt Date: 20250705
  Transmission Date: 20251021
  Serious: No
  Sender: HETERO
  Company Number: US-HETERO-HET2025US01068

PATIENT
  Weight: 77.098 kg

DRUGS (1)
  1. DIVALPROEX SODIUM [Suspect]
     Active Substance: DIVALPROEX SODIUM
     Indication: Seizure
     Route: 065
     Dates: start: 20240803, end: 20241105

REACTIONS (2)
  - Product residue present [Unknown]
  - Product solubility abnormal [Unknown]
